FAERS Safety Report 7285727-9 (Version None)
Quarter: 2011Q1

REPORT INFORMATION
  Report Type: 
  Country: None (occurrence: None)
  Receive Date: 20110210
  Receipt Date: 20110202
  Transmission Date: 20110831
  Serious: Yes (Disabling)
  Sender: FDA-Public Use
  Company Number: JP-ASTRAZENECA-2011SE05965

PATIENT
  Age: 43 Year
  Sex: Female

DRUGS (2)
  1. ROPIVACAINE HYDROCHLORIDE [Suspect]
     Indication: NERVE BLOCK
     Route: 053
     Dates: start: 20101227, end: 20101227
  2. ROPIVACAINE HYDROCHLORIDE [Suspect]
     Dosage: 260 MG TWO TIMES A DAY, DIV, 26 ML IN TOTAL FOR 23 HOURS
     Route: 053
     Dates: start: 20101227, end: 20101228

REACTIONS (1)
  - PARALYSIS [None]
